FAERS Safety Report 18429410 (Version 1)
Quarter: 2020Q4

REPORT INFORMATION
  Report Type: Spontaneous
  Country: US (occurrence: US)
  Receive Date: 20201026
  Receipt Date: 20201026
  Transmission Date: 20210114
  Serious: No
  Sender: FDA-Public Use
  Company Number: US-FRESENIUS MEDICAL CARE RENAL THERAPIES GROUP-FMC-2010-001250

PATIENT
  Sex: Female

DRUGS (1)
  1. DELFLEX [Suspect]
     Active Substance: CALCIUM CHLORIDE\DEXTROSE\MAGNESIUM CHLORIDE\SODIUM CHLORIDE\SODIUM LACTATE
     Indication: END STAGE RENAL DISEASE
     Dosage: CYCLE BASED FILLS 4; FILL VOLUME 2000 ML; LAST FILL VOLUME 0 ML; TOTAL VOLUME 8000 ML; TOTAL SLEEP T
     Route: 033

REACTIONS (2)
  - Complication associated with device [Unknown]
  - Bloody peritoneal effluent [Unknown]
